FAERS Safety Report 25664469 (Version 1)
Quarter: 2025Q3

REPORT INFORMATION
  Report Type: Spontaneous
  Country: CA (occurrence: CA)
  Receive Date: 20250811
  Receipt Date: 20250811
  Transmission Date: 20251020
  Serious: Yes (Other)
  Sender: TEVA
  Company Number: CA-TEVA-VS-3360833

PATIENT
  Age: 86 Year
  Sex: Female

DRUGS (2)
  1. PREDNISONE [Suspect]
     Active Substance: PREDNISONE
     Indication: Product used for unknown indication
     Route: 065
  2. HYDROXYCHLOROQUINE SULFATE [Suspect]
     Active Substance: HYDROXYCHLOROQUINE SULFATE
     Indication: Rheumatoid arthritis
     Route: 065

REACTIONS (7)
  - Myopathy toxic [Recovering/Resolving]
  - Gait inability [Recovering/Resolving]
  - Contusion [Recovering/Resolving]
  - Muscular weakness [Recovering/Resolving]
  - Cushingoid [Recovering/Resolving]
  - Skin hyperpigmentation [Recovering/Resolving]
  - Hypoaesthesia [Recovering/Resolving]
